FAERS Safety Report 26167598 (Version 1)
Quarter: 2025Q4

REPORT INFORMATION
  Report Type: Spontaneous
  Country: US (occurrence: US)
  Receive Date: 20251217
  Receipt Date: 20251217
  Transmission Date: 20260118
  Serious: No
  Sender: MERCK SHARP & DOHME LLC
  Company Number: US-009507513-2357964

PATIENT
  Age: 40 Year
  Sex: Male

DRUGS (2)
  1. CILASTATIN\IMIPENEM\RELEBACTAM [Suspect]
     Active Substance: CILASTATIN\IMIPENEM\RELEBACTAM
     Indication: Pneumonia pseudomonal
     Dosage: FROM HD-38 TO HD-57
  2. CILASTATIN\IMIPENEM\RELEBACTAM [Suspect]
     Active Substance: CILASTATIN\IMIPENEM\RELEBACTAM
     Indication: Pneumonia pseudomonal
     Dosage: AROUND HD-86 TO HD-102

REACTIONS (4)
  - Pathogen resistance [Recovered/Resolved]
  - Incorrect product administration duration [Unknown]
  - Pathogen resistance [Not Recovered/Not Resolved]
  - Incorrect product administration duration [Unknown]
